FAERS Safety Report 5497989-9 (Version None)
Quarter: 2007Q4

REPORT INFORMATION
  Report Type: 
  Country: None (occurrence: None)
  Receive Date: 20071025
  Receipt Date: 20071013
  Transmission Date: 20080405
  Serious: Yes (Other)
  Sender: FDA-Public Use
  Company Number: US-PFIZER INC-2007073005

PATIENT
  Sex: Female
  Weight: 78.9 kg

DRUGS (4)
  1. LYRICA [Suspect]
     Indication: NEURALGIA
     Dates: start: 20070823, end: 20070823
  2. SYNTHROID [Concomitant]
     Dosage: DAILY DOSE:50MCG
  3. LOVASTATIN [Concomitant]
     Dosage: DAILY DOSE:40MG
  4. VICODIN [Concomitant]
     Dosage: TEXT:15/1500MG

REACTIONS (5)
  - AGGRESSION [None]
  - AGITATION [None]
  - ANGER [None]
  - ORAL MUCOSAL BLISTERING [None]
  - SWOLLEN TONGUE [None]
